FAERS Safety Report 15444473 (Version 2)
Quarter: 2019Q1

REPORT INFORMATION
  Report Type: Spontaneous
  Country: US (occurrence: US)
  Receive Date: 20180928
  Receipt Date: 20190128
  Transmission Date: 20190417
  Serious: No
  Sender: FDA-Public Use
  Company Number: US-SA-2018SA177541

PATIENT
  Age: 36 Year
  Sex: Male

DRUGS (1)
  1. FABRAZYME [Suspect]
     Active Substance: AGALSIDASE BETA
     Indication: FABRY^S DISEASE
     Dosage: 5 MG, EVERY OTHER WEEK
     Route: 041
     Dates: start: 20150320

REACTIONS (4)
  - Poor venous access [Unknown]
  - Treatment noncompliance [Unknown]
  - Therapeutic response decreased [Unknown]
  - Product dose omission [Unknown]

NARRATIVE: CASE EVENT DATE: 20181221
